FAERS Safety Report 8980356 (Version 4)
Quarter: 2014Q2

REPORT INFORMATION
  Report Type: Spontaneous
  Country: US (occurrence: US)
  Receive Date: 20121221
  Receipt Date: 20140513
  Transmission Date: 20141212
  Serious: Yes (Hospitalization, Other)
  Sender: FDA-Public Use
  Company Number: US-009507513-1212USA008173

PATIENT
  Sex: Female
  Weight: 68.27 kg

DRUGS (5)
  1. FOSAMAX [Suspect]
     Indication: OSTEOPENIA
     Dosage: 70 MG, QW
     Route: 048
     Dates: start: 20010605, end: 20110429
  2. FOSAMAX [Suspect]
     Indication: OSTEOPOROSIS
  3. ALENDRONATE SODIUM [Suspect]
     Dosage: 70 MG, UNK
     Route: 048
  4. CALCIUM (UNSPECIFIED) [Concomitant]
     Indication: OSTEOPOROSIS
  5. VITAMIN D (UNSPECIFIED) [Concomitant]
     Indication: OSTEOPOROSIS

REACTIONS (18)
  - Intramedullary rod insertion [Unknown]
  - Surgery [Unknown]
  - Knee arthroplasty [Unknown]
  - Femur fracture [Recovering/Resolving]
  - Hypertension [Unknown]
  - Varicose vein operation [Unknown]
  - Rhonchi [Unknown]
  - Bursitis [Unknown]
  - Osteoarthritis [Unknown]
  - Anaemia postoperative [Unknown]
  - Deep vein thrombosis [Unknown]
  - Fall [Unknown]
  - Rotator cuff syndrome [Unknown]
  - Bone cyst [Unknown]
  - Deep vein thrombosis [Unknown]
  - Biopsy breast [Unknown]
  - Cataract operation [Unknown]
  - Anaemia [Unknown]
